FAERS Safety Report 21845628 (Version 1)
Quarter: 2023Q1

REPORT INFORMATION
  Report Type: Report from Study
  Country: US (occurrence: US)
  Receive Date: 20230111
  Receipt Date: 20230111
  Transmission Date: 20230418
  Serious: No
  Sender: FDA-Public Use
  Company Number: US-ABBVIE-4231964

PATIENT
  Sex: Male

DRUGS (16)
  1. CARBIDOPA\LEVODOPA [Suspect]
     Active Substance: CARBIDOPA\LEVODOPA
     Indication: Product used for unknown indication
     Route: 050
     Dates: start: 20190920
  2. CARBIDOPA\LEVODOPA [Suspect]
     Active Substance: CARBIDOPA\LEVODOPA
  3. MYRBETRIQ [Concomitant]
     Active Substance: MIRABEGRON
     Indication: Product used for unknown indication
     Route: 048
  4. IBUPROFEN [Concomitant]
     Active Substance: IBUPROFEN
     Indication: Product used for unknown indication
     Dosage: 800MG
     Route: 048
  5. RYTARY 32.25-145MG [Concomitant]
     Indication: Product used for unknown indication
     Route: 048
  6. CANNABIDIOL\HERBALS [Concomitant]
     Active Substance: CANNABIDIOL\HERBALS
     Indication: Product used for unknown indication
     Dosage: 1 DOSE
     Route: 048
  7. MELATONIN 10MG [Concomitant]
     Indication: Product used for unknown indication
     Dosage: 10MG
     Route: 048
  8. Flaxseed oil 1000MG [Concomitant]
     Indication: Product used for unknown indication
     Route: 048
  9. ACIDOPHILUS 100MG [Concomitant]
     Indication: Product used for unknown indication
     Route: 048
  10. BETA GLUCAN 400MG [Concomitant]
     Indication: Product used for unknown indication
     Route: 048
  11. COQ10 50MG [Concomitant]
     Indication: Product used for unknown indication
     Route: 048
  12. ASPIRIN [Concomitant]
     Active Substance: ASPIRIN
     Indication: Product used for unknown indication
     Route: 048
  13. CITALOPRAM [Concomitant]
     Active Substance: CITALOPRAM HYDROBROMIDE
     Indication: Product used for unknown indication
     Dosage: 40MG
     Route: 048
  14. RIVASTIGMINE 1.5MG [Concomitant]
     Indication: Product used for unknown indication
     Route: 048
  15. VITAMIN E 400 UNIT [Concomitant]
     Indication: Product used for unknown indication
     Dosage: 400 UNIT
     Route: 048
  16. VITAMIN D3 1250MCG [Concomitant]
     Indication: Product used for unknown indication
     Dosage: 1250MCG
     Route: 048

REACTIONS (3)
  - Granuloma [Unknown]
  - Device alarm issue [Not Recovered/Not Resolved]
  - Device issue [Unknown]

NARRATIVE: CASE EVENT DATE: 20220101
